FAERS Safety Report 5773189-X (Version None)
Quarter: 2008Q2

REPORT INFORMATION
  Report Type: 
  Country: None (occurrence: None)
  Receive Date: 20080613
  Receipt Date: 20080613
  Transmission Date: 20081010
  Serious: Yes (Other)
  Sender: FDA-Public Use
  Company Number: None

PATIENT
  Sex: Male
  Weight: 97.0698 kg

DRUGS (2)
  1. AMBIEN [Suspect]
     Indication: INSOMNIA
  2. IV ANTIBIOTICS [Concomitant]

REACTIONS (1)
  - SOMNAMBULISM [None]
